FAERS Safety Report 5413381-7 (Version None)
Quarter: 2007Q3

REPORT INFORMATION
  Report Type: 
  Country: None (occurrence: None)
  Receive Date: 20070814
  Receipt Date: 20070808
  Transmission Date: 20080115
  Serious: Yes (Other)
  Sender: FDA-Public Use
  Company Number: US-JNJFOC-20070802272

PATIENT
  Sex: Female
  Weight: 59.42 kg

DRUGS (4)
  1. CONCERTA [Suspect]
     Indication: ATTENTION DEFICIT/HYPERACTIVITY DISORDER
     Route: 048
  2. ZOLOFT [Concomitant]
     Indication: DEPRESSION
     Route: 048
  3. ABILIFY [Concomitant]
     Indication: HALLUCINATION, AUDITORY
     Route: 048
  4. FOCALIN [Concomitant]
     Indication: ATTENTION DEFICIT/HYPERACTIVITY DISORDER
     Route: 048

REACTIONS (7)
  - AGGRESSION [None]
  - DECREASED APPETITE [None]
  - DEPRESSION [None]
  - HALLUCINATION, AUDITORY [None]
  - HOSTILITY [None]
  - MANIA [None]
  - WEIGHT DECREASED [None]
